FAERS Safety Report 4479028-1 (Version None)
Quarter: 2004Q4

REPORT INFORMATION
  Report Type: 
  Country: None (occurrence: None)
  Receive Date: 20040923
  Receipt Date: 20040803
  Transmission Date: 20050328
  Serious: No
  Sender: FDA-Public Use
  Company Number: 208211

PATIENT
  Age: 50 Year
  Sex: Male

DRUGS (11)
  1. AVASTIN [Suspect]
     Indication: COLON CANCER METASTATIC
     Dosage: 462 MG, INTRAVENOUS
     Route: 042
     Dates: start: 20040511
  2. FLUOROURACIL [Concomitant]
  3. OXALIPLATIN (OXALIPLATIN) [Concomitant]
  4. ZOLOFT [Concomitant]
  5. GEODON [Concomitant]
  6. PROVIGIL [Concomitant]
  7. LANTUS (NSULIN GLARGINE) [Concomitant]
  8. COMPAZINE [Concomitant]
  9. FLOVENT [Concomitant]
  10. CLARITIN [Concomitant]
  11. ALEVAIRE (TYLOXAPOL) [Concomitant]

REACTIONS (1)
  - DEPRESSION [None]
